FAERS Safety Report 7675593-1 (Version None)
Quarter: 2011Q3

REPORT INFORMATION
  Report Type: 
  Country: None (occurrence: None)
  Receive Date: 20110810
  Receipt Date: 20090921
  Transmission Date: 20111222
  Serious: Yes (Death)
  Sender: FDA-Public Use
  Company Number: US-BAYER-200933093NA

PATIENT
  Sex: Male
  Weight: 82.54 kg

DRUGS (18)
  1. OMNISCAN [Suspect]
     Indication: ANGIOGRAM
     Dosage: 40 ML, ONCE
     Dates: start: 20020301, end: 20020301
  2. ZEMPLAR [Concomitant]
  3. VENOFER [Concomitant]
  4. IMDUR [Concomitant]
  5. OPTIMARK [Suspect]
     Indication: ANGIOGRAM
  6. RENAGEL [Concomitant]
  7. PHOSLO [Concomitant]
  8. MAGNEVIST [Suspect]
     Indication: NUCLEAR MAGNETIC RESONANCE IMAGING
     Dosage: UNK, ONCE
     Dates: start: 20020228, end: 20020228
  9. MAGNEVIST [Suspect]
     Indication: ANGIOGRAM
     Dosage: 40 ML, ONCE
     Dates: start: 20020404, end: 20020404
  10. TOPROL-XL [Concomitant]
  11. PROHANCE [Suspect]
     Indication: NUCLEAR MAGNETIC RESONANCE IMAGING
  12. EPOGEN [Concomitant]
  13. NEURONTIN [Concomitant]
  14. LIPITOR [Concomitant]
  15. OPTIMARK [Suspect]
     Indication: NUCLEAR MAGNETIC RESONANCE IMAGING
  16. MULTIHANCE [Suspect]
     Indication: NUCLEAR MAGNETIC RESONANCE IMAGING
  17. PROHANCE [Suspect]
     Indication: ANGIOGRAM
  18. MULTIHANCE [Suspect]
     Indication: ANGIOGRAM

REACTIONS (10)
  - SKIN FIBROSIS [None]
  - GENERAL PHYSICAL HEALTH DETERIORATION [None]
  - ANHEDONIA [None]
  - FIBROSIS [None]
  - MUSCLE CONTRACTURE [None]
  - DEFORMITY [None]
  - SCAR [None]
  - ANXIETY [None]
  - NEPHROGENIC SYSTEMIC FIBROSIS [None]
  - PAIN [None]
